FAERS Safety Report 4982570-8 (Version None)
Quarter: 2006Q1

REPORT INFORMATION
  Report Type: 
  Country: None (occurrence: None)
  Receive Date: 20060227
  Receipt Date: 20050419
  Transmission Date: 20060701
  Serious: Yes (Hospitalization, Disabling)
  Sender: FDA-Public Use
  Company Number: WAES 0504USA03520

PATIENT
  Age: 83 Year
  Sex: Female
  Weight: 68.0396 kg

DRUGS (10)
  1. ZOCOR [Suspect]
     Dosage: PO
     Route: 048
     Dates: start: 20040801
  2. ALDACTONE [Concomitant]
  3. COREG [Concomitant]
  4. DARVOCET-N 100 [Concomitant]
  5. K-DUR 10 [Concomitant]
  6. LASIX [Concomitant]
  7. INSULIN INSULATARD NPH NORDISK [Concomitant]
  8. PRINIVIL [Concomitant]
  9. REGULAR INSULIN [Concomitant]
  10. ZETIA [Concomitant]

REACTIONS (1)
  - RHABDOMYOLYSIS [None]
